FAERS Safety Report 13164995 (Version 1)
Quarter: 2017Q1

REPORT INFORMATION
  Report Type: Report from Study
  Country: US (occurrence: US)
  Receive Date: 20170130
  Receipt Date: 20170130
  Transmission Date: 20170428
  Serious: Yes (Other)
  Sender: FDA-Public Use
  Company Number: US-GILEAD-2016-0250702

PATIENT
  Age: 68 Year
  Sex: Female

DRUGS (1)
  1. LEDIPASVIR/SOFOSBUVIR [Suspect]
     Active Substance: LEDIPASVIR\SOFOSBUVIR
     Indication: CHRONIC HEPATITIS C
     Dosage: 1 DF, QD
     Route: 048
     Dates: start: 20161013, end: 20170102

REACTIONS (4)
  - Hypotension [Unknown]
  - Heart rate irregular [Unknown]
  - Headache [Unknown]
  - Hypertension [Unknown]

NARRATIVE: CASE EVENT DATE: 20161222
